FAERS Safety Report 9466234 (Version 2)
Quarter: 2013Q3

REPORT INFORMATION
  Report Type: Spontaneous
  Country: US (occurrence: US)
  Receive Date: 20130820
  Receipt Date: 20130927
  Transmission Date: 20140515
  Serious: Yes (Death, Congenital Anomaly)
  Sender: FDA-Public Use
  Company Number: US-PFIZER INC-2013237702

PATIENT
  Sex: Male

DRUGS (4)
  1. ZOLOFT [Suspect]
     Indication: ANXIETY
     Dosage: UNK
     Route: 064
     Dates: start: 20040402, end: 2007
  2. ZOLOFT [Suspect]
     Indication: DEPRESSION
  3. ZOLOFT [Suspect]
     Indication: AFFECTIVE DISORDER
  4. TYLENOL [Concomitant]
     Dosage: UNK, AS NEEDED
     Route: 064

REACTIONS (7)
  - Maternal exposure during pregnancy [Fatal]
  - Heart disease congenital [Fatal]
  - Congenital anomaly [Fatal]
  - Cardiac failure [Fatal]
  - Pulmonary hypertension [Fatal]
  - Deformity [Unknown]
  - Injury [Unknown]
